FAERS Safety Report 21760861 (Version 2)
Quarter: 2023Q2

REPORT INFORMATION
  Report Type: Report from Study
  Country: ES (occurrence: ES)
  Receive Date: 20221221
  Receipt Date: 20230628
  Transmission Date: 20230721
  Serious: Yes (Hospitalization)
  Sender: FDA-Public Use
  Company Number: ES-G1-000515

PATIENT

DRUGS (22)
  1. TRILACICLIB [Suspect]
     Active Substance: TRILACICLIB
     Indication: Myelosuppression
     Dosage: 240 MG/M2 (454 MG) ON DAY 1 AND 8 OF EACH CYCLE
     Route: 041
     Dates: start: 20220127, end: 20220317
  2. TRILACICLIB [Suspect]
     Active Substance: TRILACICLIB
     Dosage: 240 MG/M2 (454 MG) ON DAY 1 AND 8 OF EACH CYCLE
     Route: 041
     Dates: start: 20220407
  3. GEMCITABINE [Suspect]
     Active Substance: GEMCITABINE
     Indication: Transitional cell carcinoma
     Dosage: 1000 MG/M2 (1890 MG) ON DAY 1 AND 8 OF EACH CYCLE
     Route: 041
     Dates: start: 20220127, end: 20220317
  4. GEMCITABINE [Suspect]
     Active Substance: GEMCITABINE
     Dosage: 1000 MG/M2 (1890 MG) ON DAY 1 AND 8 OF EACH CYCLE
     Route: 041
     Dates: start: 20220407, end: 20220407
  5. GEMCITABINE [Suspect]
     Active Substance: GEMCITABINE
     Dosage: 800 MG/M2 N DAY 1 AND 8 OF EACH CYCLE
     Route: 041
     Dates: start: 20220414
  6. CARBOPLATIN [Suspect]
     Active Substance: CARBOPLATIN
     Indication: Transitional cell carcinoma
     Dosage: 4.5 AUC (491 MG)ON DAY 1 OF EACH CYCLE
     Route: 041
     Dates: start: 20220127, end: 20220224
  7. CARBOPLATIN [Suspect]
     Active Substance: CARBOPLATIN
     Dosage: 4.5 AUC (459 MG) ON DAY 1 OF EACH CYCLE
     Route: 041
     Dates: start: 20220317, end: 20220317
  8. CARBOPLATIN [Suspect]
     Active Substance: CARBOPLATIN
     Dosage: 4.5 AUC (513 MG) ON DAY 1 OF EACH CYCLE
     Route: 041
     Dates: start: 20220407, end: 20220407
  9. AVELUMAB [Suspect]
     Active Substance: AVELUMAB
     Indication: Transitional cell carcinoma
     Dosage: DRUG NOT ADMINISTERED
  10. CISPLATIN [Suspect]
     Active Substance: CISPLATIN
     Indication: Transitional cell carcinoma
     Dosage: DRUG NOT ADMINISTERED
  11. SERC (BETAHISTINE HYDROCHLORIDE) [Concomitant]
     Active Substance: BETAHISTINE HYDROCHLORIDE
     Indication: Meniere^s disease
     Dosage: 24 MILLIGRAM, QD
     Route: 048
     Dates: start: 2014
  12. FILGRASTIM [Concomitant]
     Active Substance: FILGRASTIM
     Indication: Neutrophil count decreased
     Dosage: 480 MILLIGRAM, QD
     Route: 048
     Dates: start: 20220224, end: 20220228
  13. FILGRASTIM [Concomitant]
     Active Substance: FILGRASTIM
     Dosage: 480 MILLIGRAM, QD
     Route: 048
     Dates: start: 20220317, end: 20220320
  14. LOPERAMIDE [Concomitant]
     Active Substance: LOPERAMIDE
     Indication: Diarrhoea
     Dosage: UNK, OCCASIONAL USE
     Route: 048
     Dates: start: 20220304, end: 20220307
  15. ACETAMINOPHEN [Concomitant]
     Active Substance: ACETAMINOPHEN
     Indication: Pain prophylaxis
     Dosage: UNK, PRN
     Route: 048
     Dates: start: 20220224
  16. IBUPROFEN [Concomitant]
     Active Substance: IBUPROFEN
     Indication: Pain prophylaxis
     Dosage: 600 MILLIGRAM, PRN
     Route: 048
     Dates: start: 20220127
  17. ZOFRAN [Concomitant]
     Active Substance: ONDANSETRON HYDROCHLORIDE
     Indication: Nausea
     Dosage: 8 MG; FREQUENCY: INTERMITTENT
     Route: 048
     Dates: start: 20220303
  18. DEXAMETHASONE [Concomitant]
     Active Substance: DEXAMETHASONE
     Indication: Inflammation
     Dosage: 4 MILLIGRAM; 3 TIMES PER WEEK
     Route: 048
     Dates: start: 20220303
  19. ABSTRAL [Concomitant]
     Active Substance: FENTANYL CITRATE
     Indication: Abdominal pain
     Dosage: 100 MG, TID
     Route: 048
     Dates: start: 20220224
  20. DEXAMETHASONE [Concomitant]
     Active Substance: DEXAMETHASONE
     Indication: Prophylactic chemotherapy
     Dosage: 12 MG, SINGLE
     Route: 048
     Dates: start: 20220303, end: 20220303
  21. DEXAMETHASONE [Concomitant]
     Active Substance: DEXAMETHASONE
     Dosage: 12 MG, SINGLE
     Route: 048
     Dates: start: 20220317, end: 20220317
  22. ONDANSETRON [Concomitant]
     Active Substance: ONDANSETRON
     Indication: Prophylactic chemotherapy
     Dosage: 12 MG, SINGLE
     Route: 048
     Dates: start: 20220317, end: 20220317

REACTIONS (1)
  - Renal failure [Recovered/Resolved]

NARRATIVE: CASE EVENT DATE: 20220324
